FAERS Safety Report 4336915-2 (Version None)
Quarter: 2004Q2

REPORT INFORMATION
  Report Type: 
  Country: None (occurrence: None)
  Receive Date: 20040407
  Receipt Date: 20040325
  Transmission Date: 20050107
  Serious: Yes (Other)
  Sender: FDA-Public Use
  Company Number: 2004007885

PATIENT
  Age: 49 Year
  Sex: Female
  Weight: 63.05 kg

DRUGS (5)
  1. NEURONTIN [Suspect]
     Indication: PAIN IN EXTREMITY
     Dosage: 1200 MG (TID), ORAL
     Route: 048
     Dates: start: 20040113, end: 20040218
  2. NEURONTIN [Suspect]
     Indication: PARTIAL SEIZURES
     Dosage: 1200 MG (TID), ORAL
     Route: 048
     Dates: start: 20040113, end: 20040218
  3. LEVETIRACETAM [Concomitant]
  4. FLUOXETINE [Concomitant]
  5. PHENOBARBITAL TAB [Concomitant]

REACTIONS (2)
  - PARTIAL SEIZURES [None]
  - VAGINAL HAEMORRHAGE [None]
